FAERS Safety Report 7533429-3 (Version None)
Quarter: 2011Q2

REPORT INFORMATION
  Report Type: 
  Country: None (occurrence: None)
  Receive Date: 20110608
  Receipt Date: 20051110
  Transmission Date: 20111010
  Serious: Yes (Death)
  Sender: FDA-Public Use
  Company Number: PHHO2005CA16512

PATIENT
  Sex: Male

DRUGS (2)
  1. CLOZAPINE [Suspect]
     Indication: PSYCHOTIC DISORDER
     Dosage: 25 MG, QHS
     Route: 048
     Dates: start: 20050301
  2. L-DOPA [Concomitant]
     Indication: PSYCHOTIC DISORDER

REACTIONS (1)
  - MYOCARDIAL INFARCTION [None]
